FAERS Safety Report 6074489-9 (Version None)
Quarter: 2009Q1

REPORT INFORMATION
  Report Type: 
  Country: None (occurrence: None)
  Receive Date: 20090211
  Receipt Date: 20090127
  Transmission Date: 20090719
  Serious: Yes (Hospitalization)
  Sender: FDA-Public Use
  Company Number: DE-GENENTECH-277129

PATIENT
  Sex: Female

DRUGS (1)
  1. RITUXIMAB [Suspect]
     Dosage: 1000 MG, UNK
     Route: 065
     Dates: start: 20071114, end: 20071130

REACTIONS (1)
  - TENDON RUPTURE [None]
